FAERS Safety Report 6691712-8 (Version None)
Quarter: 2010Q2

REPORT INFORMATION
  Report Type: 
  Country: None (occurrence: None)
  Receive Date: 20100422
  Receipt Date: 20090611
  Transmission Date: 20101027
  Serious: No
  Sender: FDA-Public Use
  Company Number: US-ASTRAZENECA-2009UW14938

PATIENT
  Age: 72 Year
  Sex: Female
  Weight: 95.3 kg

DRUGS (3)
  1. TOPROL-XL [Suspect]
     Route: 048
  2. WARFARIN SODIUM [Concomitant]
  3. NITROFURANTOIN [Concomitant]

REACTIONS (4)
  - BLOOD PRESSURE INCREASED [None]
  - CHEST PAIN [None]
  - HOT FLUSH [None]
  - MYALGIA [None]
